FAERS Safety Report 9448243 (Version 1)
Quarter: 2013Q3

REPORT INFORMATION
  Report Type: Spontaneous
  Country: US (occurrence: None)
  Receive Date: 20130807
  Receipt Date: 20130807
  Transmission Date: 20140515
  Serious: Yes (Other)
  Sender: FDA-Public Use
  Company Number: None

PATIENT
  Age: 66 Year
  Sex: Female

DRUGS (1)
  1. ANASTRAZOLE [Suspect]
     Dosage: ANASTROZOL 1 MG QD PO
     Route: 048
     Dates: start: 201303

REACTIONS (1)
  - Urticaria [None]
